FAERS Safety Report 6620037-1 (Version None)
Quarter: 2010Q1

REPORT INFORMATION
  Report Type: 
  Country: None (occurrence: None)
  Receive Date: 20100309
  Receipt Date: 20100225
  Transmission Date: 20100710
  Serious: Yes (Other)
  Sender: FDA-Public Use
  Company Number: JP-ROCHE-687261

PATIENT
  Age: 71 Year
  Sex: Male

DRUGS (2)
  1. REBETOL [Suspect]
     Route: 048
     Dates: start: 20070101, end: 20080301
  2. PEG-INTRON [Suspect]
     Route: 058
     Dates: start: 20070101, end: 20080301

REACTIONS (1)
  - SKIN ULCER [None]
